FAERS Safety Report 9821580 (Version 3)
Quarter: 2014Q2

REPORT INFORMATION
  Report Type: Report from Study
  Country: JP (occurrence: JP)
  Receive Date: 20140116
  Receipt Date: 20140523
  Transmission Date: 20141212
  Serious: Yes (Death, Life-Threatening, Hospitalization, Other)
  Sender: FDA-Public Use
  Company Number: JP-AMGEN-JPNCT2014002741

PATIENT
  Age: 76 Year
  Sex: Male
  Weight: 58 kg

DRUGS (18)
  1. DARBEPOETIN ALFA [Suspect]
     Indication: NEPHROGENIC ANAEMIA
     Dosage: 30 MUG, Q2WK
     Route: 058
     Dates: start: 20111031, end: 20121218
  2. TANATRIL [Concomitant]
     Dosage: UNK
     Route: 048
  3. ADALAT [Concomitant]
     Dosage: UNK
     Route: 048
  4. SELBEX [Concomitant]
     Dosage: UNK
     Route: 048
  5. MEXITIL [Concomitant]
     Dosage: UNK
     Route: 048
  6. CARDENALIN [Concomitant]
     Dosage: UNK
     Route: 048
  7. MEVALOTIN [Concomitant]
     Dosage: UNK
     Route: 048
  8. MYSLEE [Concomitant]
     Dosage: UNK
     Route: 048
  9. FERROMIA [Concomitant]
     Dosage: UNK
     Route: 048
  10. LAXOBERON [Concomitant]
     Dosage: UNK
     Route: 048
  11. ARGAMATE [Concomitant]
     Dosage: UNK
     Route: 048
  12. OLMETEC [Concomitant]
     Dosage: UNK
     Route: 048
  13. LIVALO [Concomitant]
     Dosage: UNK
     Route: 048
  14. PROTECADIN [Concomitant]
     Dosage: UNK
     Route: 048
  15. ALDOMET                            /00000101/ [Concomitant]
     Dosage: UNK
     Route: 048
  16. KALIMATE [Concomitant]
     Dosage: UNK
     Route: 048
  17. LANTUS [Concomitant]
     Indication: DIABETES MELLITUS
     Dosage: UNK
     Route: 058
  18. NOVORAPID [Concomitant]
     Indication: DIABETES MELLITUS
     Dosage: UNK
     Route: 058

REACTIONS (13)
  - Dementia [Unknown]
  - Fall [Recovered/Resolved with Sequelae]
  - Convulsion [Recovering/Resolving]
  - Sepsis [Fatal]
  - Decubitus ulcer [Not Recovered/Not Resolved]
  - Fluid retention [Recovered/Resolved]
  - Gastrooesophageal reflux disease [Recovering/Resolving]
  - Diarrhoea [Recovering/Resolving]
  - Conjunctivitis [Recovered/Resolved]
  - Blood pressure increased [Recovering/Resolving]
  - Hypertension [Recovered/Resolved]
  - Rash [Recovering/Resolving]
  - Hyperglycaemia [Recovered/Resolved]
